FAERS Safety Report 11852780 (Version 1)
Quarter: 2015Q4

REPORT INFORMATION
  Report Type: Spontaneous
  Country: KR (occurrence: KR)
  Receive Date: 20151218
  Receipt Date: 20151218
  Transmission Date: 20160305
  Serious: Yes (Other)
  Sender: FDA-Public Use
  Company Number: PHHY2015KR163736

PATIENT
  Age: 74 Year
  Sex: Female

DRUGS (5)
  1. BUPROPION. [Suspect]
     Active Substance: BUPROPION
     Indication: INSOMNIA
     Route: 065
  2. DIAZEPAM. [Suspect]
     Active Substance: DIAZEPAM
     Indication: INSOMNIA
     Route: 065
  3. TIANEPTINE SODIUM [Suspect]
     Active Substance: TIANEPTINE SODIUM
     Indication: INSOMNIA
     Route: 065
  4. ALPRAZOLAM. [Suspect]
     Active Substance: ALPRAZOLAM
     Indication: INSOMNIA
     Route: 065
  5. IMIPRAMINE [Suspect]
     Active Substance: IMIPRAMINE
     Indication: INSOMNIA
     Route: 065

REACTIONS (1)
  - Parkinsonism [Recovered/Resolved]
